FAERS Safety Report 13531042 (Version 1)
Quarter: 2017Q2

REPORT INFORMATION
  Report Type: Report from Study
  Country: BR (occurrence: BR)
  Receive Date: 20170510
  Receipt Date: 20170510
  Transmission Date: 20170830
  Serious: Yes (Other)
  Sender: FDA-Public Use
  Company Number: BR-UCBSA-2017001008

PATIENT
  Age: 52 Year
  Sex: Female
  Weight: 81 kg

DRUGS (9)
  1. DIPYRONE [Concomitant]
     Active Substance: DIPYRONE
     Indication: PAIN
     Dosage: 1 DF, 4X/DAY (QID)
     Route: 048
     Dates: start: 20170101, end: 20170103
  2. NIMESULIDE [Concomitant]
     Active Substance: NIMESULIDE
     Indication: INFLAMMATION
     Dosage: 1 DF, 2X/DAY (BID)
     Route: 048
     Dates: start: 20160103
  3. NEOMYCIN [Concomitant]
     Active Substance: NEOMYCIN
     Indication: INFLAMMATION
     Dosage: UNK, ONCE DAILY (QD)
     Route: 061
     Dates: start: 20170101
  4. CERTOLIZUMAB PEGOL [Suspect]
     Active Substance: CERTOLIZUMAB PEGOL
     Dosage: 200 MG, EV 15 DAYS
     Dates: start: 201701
  5. HYDROCHLOROTHIAZIDE. [Concomitant]
     Active Substance: HYDROCHLOROTHIAZIDE
     Indication: HYPERTENSION
     Dosage: UNK, ONCE DAILY (QD)
     Route: 048
     Dates: start: 2011
  6. CEPHALEXIN. [Concomitant]
     Active Substance: CEPHALEXIN
     Indication: INFLAMMATION
     Dosage: 1 DF, 4X/DAY (QID)
     Route: 048
     Dates: start: 20170103
  7. LOSARTAN. [Concomitant]
     Active Substance: LOSARTAN
     Indication: HYPERTENSION
     Dosage: UNK, ONCE DAILY (QD)
     Dates: start: 2011
  8. CERTOLIZUMAB PEGOL [Suspect]
     Active Substance: CERTOLIZUMAB PEGOL
     Indication: RHEUMATOID ARTHRITIS
     Dosage: UNK DOSE, RECEIVED ONLY ONE SYRINGE
     Dates: start: 20161119
  9. FORASEQ [Concomitant]
     Active Substance: BUDESONIDE\FORMOTEROL FUMARATE
     Indication: ASTHMA
     Dosage: UNK, 2X/DAY (BID), 1 INHALATION AT MORNING AND AT NIGHT
     Route: 055

REACTIONS (3)
  - Inflammation [Not Recovered/Not Resolved]
  - Limb mass [Recovered/Resolved]
  - Intentional product misuse [Unknown]

NARRATIVE: CASE EVENT DATE: 20161119
